FAERS Safety Report 19279652 (Version 3)
Quarter: 2021Q3

REPORT INFORMATION
  Report Type: Other
  Country: JP (occurrence: JP)
  Receive Date: 20210520
  Receipt Date: 20210904
  Transmission Date: 20211014
  Serious: Yes (Hospitalization, Other)
  Sender: FDA-Public Use
  Company Number: JP-ROCHE-2818257

PATIENT
  Age: 69 Year
  Sex: Male
  Weight: 70.3 kg

DRUGS (3)
  1. ENTRECTINIB [Suspect]
     Active Substance: ENTRECTINIB
     Route: 048
     Dates: start: 20210610, end: 20210612
  2. ENTRECTINIB [Suspect]
     Active Substance: ENTRECTINIB
     Route: 048
     Dates: start: 20210521, end: 20210609
  3. ENTRECTINIB [Suspect]
     Active Substance: ENTRECTINIB
     Indication: NON-SMALL CELL LUNG CANCER
     Route: 048
     Dates: start: 20210323, end: 20210405

REACTIONS (4)
  - Metastases to liver [Unknown]
  - Ascites [Unknown]
  - Decreased appetite [Recovered/Resolved]
  - Skin disorder [Recovering/Resolving]

NARRATIVE: CASE EVENT DATE: 20210405
